FAERS Safety Report 8319862-0 (Version None)
Quarter: 2012Q2

REPORT INFORMATION
  Report Type: 
  Country: None (occurrence: None)
  Receive Date: 20120427
  Receipt Date: 20120426
  Transmission Date: 20120825
  Serious: Yes (Other)
  Sender: FDA-Public Use
  Company Number: US-PFIZER INC-2012104194

PATIENT
  Sex: Female
  Weight: 72.109 kg

DRUGS (3)
  1. METFORMIN HCL [Suspect]
     Indication: DIABETES MELLITUS
     Dosage: 500 MG, UNK
     Dates: start: 20111201
  2. CHANTIX [Suspect]
     Dosage: 1 MG, 2X/DAY
     Route: 048
     Dates: start: 20110101
  3. CHANTIX [Suspect]
     Indication: SMOKING CESSATION THERAPY
     Dosage: 0.5 MG, 1X/DAY
     Route: 048
     Dates: start: 20111013, end: 20110101

REACTIONS (10)
  - BLOOD CHOLESTEROL INCREASED [None]
  - IRRITABILITY [None]
  - BRUXISM [None]
  - ANXIETY [None]
  - MOOD ALTERED [None]
  - ABNORMAL DREAMS [None]
  - DIABETES MELLITUS [None]
  - VITAMIN D DEFICIENCY [None]
  - INSOMNIA [None]
  - DRY MOUTH [None]
